FAERS Safety Report 4550571-X (Version None)
Quarter: 2005Q1

REPORT INFORMATION
  Report Type: 
  Country: None (occurrence: None)
  Receive Date: 20050110
  Receipt Date: 20041228
  Transmission Date: 20050727
  Serious: Yes (Other)
  Sender: FDA-Public Use
  Company Number: 2004-BP-14441RO

PATIENT
  Age: 46 Year
  Sex: Female

DRUGS (6)
  1. METHOTREXATE [Suspect]
     Indication: DERMATOMYOSITIS
     Dosage: SEE TEXT
     Dates: start: 19940101, end: 20000801
  2. PREDNISONE [Suspect]
     Indication: DERMATOMYOSITIS
     Dosage: SEE TEXT, PO
     Route: 048
  3. MYCOPHENOLATE MOFETIL (MYCOPHENOLATE MOFETIL) [Suspect]
     Indication: DERMATOMYOSITIS
     Dosage: 1 GM BID (1 G), PO
     Route: 048
     Dates: start: 19990701, end: 19990801
  4. HYDROXYCHLOROQUINE SULFATE (HYDROXYCHLOROQUINE SULFATE) [Concomitant]
  5. HYDROCORTISONE [Concomitant]
  6. SUNSCREEN (SUNSCREEN) [Concomitant]

REACTIONS (13)
  - B-CELL LYMPHOMA [None]
  - CENTRAL NERVOUS SYSTEM LYMPHOMA [None]
  - DRUG ERUPTION [None]
  - EPSTEIN-BARR VIRUS ANTIBODY POSITIVE [None]
  - HEMIPARESIS [None]
  - MUSCULAR WEAKNESS [None]
  - NERVOUS SYSTEM DISORDER [None]
  - OEDEMA [None]
  - PSYCHOTIC DISORDER [None]
  - RASH MORBILLIFORM [None]
  - SENSORY LOSS [None]
  - THERAPEUTIC RESPONSE DECREASED [None]
  - VIITH NERVE PARALYSIS [None]
